FAERS Safety Report 5473238-2 (Version None)
Quarter: 2007Q4

REPORT INFORMATION
  Report Type: 
  Country: None (occurrence: None)
  Receive Date: 20071001
  Receipt Date: 20070921
  Transmission Date: 20080405
  Serious: Yes (Hospitalization)
  Sender: FDA-Public Use
  Company Number: GB-ROCHE-520638

PATIENT
  Age: 41 Year
  Sex: Female
  Weight: 93.8 kg

DRUGS (2)
  1. CAPECITABINE [Suspect]
     Indication: BREAST CANCER
     Dosage: REPORTED TO HAVE TAKEN 4 CYCLES. LAST DOSE PRIOR TO SAE REPORTED AS 21/08/2007.
     Route: 065
     Dates: start: 20070327
  2. EPIRUBICIN [Suspect]
     Indication: BREAST CANCER
     Dosage: REPORTED TO HAVE TAKEN 4 CYCLES. LAST DOSE PRIOR TO SAE REPORTED AS 21/08/2007.
     Route: 065
     Dates: start: 20070327

REACTIONS (2)
  - DYSPHASIA [None]
  - HEMIPARESIS [None]
